FAERS Safety Report 24651005 (Version 1)
Quarter: 2024Q4

REPORT INFORMATION
  Report Type: Spontaneous
  Country: GB (occurrence: GB)
  Receive Date: 20241122
  Receipt Date: 20241122
  Transmission Date: 20250115
  Serious: Yes (Other)
  Sender: JOHNSON AND JOHNSON
  Company Number: None

PATIENT
  Sex: Male

DRUGS (1)
  1. REMICADE [Suspect]
     Active Substance: INFLIXIMAB
     Indication: Adverse drug reaction
     Route: 041
     Dates: start: 2024

REACTIONS (1)
  - Spermatozoa progressive motility abnormal [Unknown]

NARRATIVE: CASE EVENT DATE: 20240101
